FAERS Safety Report 25988796 (Version 1)
Quarter: 2025Q4

REPORT INFORMATION
  Report Type: Spontaneous
  Country: US (occurrence: US)
  Receive Date: 20251103
  Receipt Date: 20251103
  Transmission Date: 20260118
  Serious: No
  Sender: LEO PHARM
  Company Number: US-LEO Pharma-383831

PATIENT
  Age: 20 Year
  Sex: Female

DRUGS (1)
  1. ADBRY [Suspect]
     Active Substance: TRALOKINUMAB-LDRM
     Indication: Dermatitis atopic
     Dosage: STARTED OCT 2024, LOT # 022A25A, EXPIRATION 01-31-2028
     Dates: start: 202410

REACTIONS (2)
  - Alopecia [Not Recovered/Not Resolved]
  - Skin reaction [Not Recovered/Not Resolved]
